FAERS Safety Report 10632963 (Version 1)
Quarter: 2014Q4

REPORT INFORMATION
  Report Type: Spontaneous
  Country: US (occurrence: None)
  Receive Date: 20141203
  Receipt Date: 20141203
  Transmission Date: 20150529
  Serious: No
  Sender: FDA-Public Use
  Company Number: None

PATIENT

DRUGS (4)
  1. ANCEF [Suspect]
     Active Substance: CEFAZOLIN SODIUM
  2. ZOSYN [Suspect]
     Active Substance: PIPERACILLIN SODIUM\TAZOBACTAM SODIUM
  3. ROCEPHIN [Suspect]
     Active Substance: CEFTRIAXONE SODIUM
  4. VANCO [Suspect]
     Active Substance: VANCOMYCIN

REACTIONS (3)
  - Product label confusion [None]
  - Physical product label issue [None]
  - Circumstance or information capable of leading to medication error [None]
